FAERS Safety Report 9157292 (Version 1)
Quarter: 2013Q1

REPORT INFORMATION
  Report Type: Spontaneous
  Country: US (occurrence: None)
  Receive Date: 20130213
  Receipt Date: 20130213
  Transmission Date: 20140127
  Serious: Yes (Other)
  Sender: FDA-Public Use
  Company Number: 2013P1001753

PATIENT
  Sex: Male

DRUGS (1)
  1. DEXTROAMPHETAMINE [Suspect]
     Dates: end: 201301

REACTIONS (4)
  - Hernia [None]
  - Gastrooesophageal reflux disease [None]
  - Condition aggravated [None]
  - Drug administration error [None]
